FAERS Safety Report 4579738-1 (Version None)
Quarter: 2005Q1

REPORT INFORMATION
  Report Type: 
  Country: None (occurrence: None)
  Receive Date: 20050210
  Receipt Date: 20050204
  Transmission Date: 20050727
  Serious: Yes (Life-Threatening)
  Sender: FDA-Public Use
  Company Number: 2005AP00963

PATIENT
  Age: 39 Year
  Sex: Male

DRUGS (3)
  1. PROPOFOL [Suspect]
     Dosage: 200 MG ONCE IV
     Route: 042
     Dates: start: 20031219, end: 20031219
  2. FENTANYL [Suspect]
     Dosage: 100 MG ONCE IV
     Route: 042
     Dates: start: 20031219, end: 20031219
  3. VECURONIUM BROMIDE [Suspect]
     Dosage: 4 MG ONCE IV
     Route: 042
     Dates: start: 20031219, end: 20031219

REACTIONS (3)
  - GRAND MAL CONVULSION [None]
  - MUSCLE SPASMS [None]
  - PNEUMONIA ASPIRATION [None]
